FAERS Safety Report 5356603-3 (Version None)
Quarter: 2007Q2

REPORT INFORMATION
  Report Type: 
  Country: None (occurrence: None)
  Receive Date: 20070614
  Receipt Date: 20070608
  Transmission Date: 20071010
  Serious: Yes (Other)
  Sender: FDA-Public Use
  Company Number: PHEH2007US05823

PATIENT
  Age: 66 Year
  Sex: Female
  Weight: 77.097 kg

DRUGS (6)
  1. CARDIZEM [Concomitant]
     Indication: OESOPHAGEAL DISORDER
     Dates: start: 19970101
  2. KLONOPIN [Concomitant]
     Indication: OESOPHAGEAL DISORDER
     Dates: start: 19970101
  3. TRAZODONE HCL [Concomitant]
     Indication: OESOPHAGEAL DISORDER
     Dates: start: 19970101
  4. DYAZIDE [Concomitant]
  5. ACTONEL [Concomitant]
     Indication: OSTEOPOROSIS
     Dates: start: 19920101
  6. ZELNORM [Suspect]
     Indication: IRRITABLE BOWEL SYNDROME
     Dosage: 6 MG, QD
     Route: 048
     Dates: end: 20070401

REACTIONS (7)
  - DYSPNOEA [None]
  - FALL [None]
  - JOINT INJURY [None]
  - LOSS OF CONSCIOUSNESS [None]
  - MUSCULAR WEAKNESS [None]
  - PALPITATIONS [None]
  - WALKING AID USER [None]
